FAERS Safety Report 7120695-1 (Version None)
Quarter: 2010Q4

REPORT INFORMATION
  Report Type: 
  Country: None (occurrence: None)
  Receive Date: 20101124
  Receipt Date: 20101119
  Transmission Date: 20110411
  Serious: Yes (Hospitalization, Other)
  Sender: FDA-Public Use
  Company Number: US-BAYER-201041977NA

PATIENT
  Age: 24 Year
  Sex: Female

DRUGS (3)
  1. YAZ [Suspect]
     Indication: ORAL CONTRACEPTION
     Route: 048
  2. PREDNISONE [Concomitant]
     Indication: BRONCHITIS
     Dates: start: 20101101
  3. ZITHROMAX [Concomitant]
     Indication: BRONCHITIS
     Dates: start: 20101101

REACTIONS (3)
  - CHEST PAIN [None]
  - COUGH [None]
  - PULMONARY EMBOLISM [None]
